FAERS Safety Report 10865984 (Version 1)
Quarter: 2015Q1

REPORT INFORMATION
  Report Type: Spontaneous
  Country: US (occurrence: US)
  Receive Date: 20150224
  Receipt Date: 20150224
  Transmission Date: 20150721
  Serious: Yes (Other)
  Sender: FDA-Public Use
  Company Number: US-JAZZ-2014-US-001775

PATIENT
  Age: 70 Year
  Sex: Female
  Weight: 71.2 kg

DRUGS (9)
  1. CYMBALTA [Concomitant]
     Active Substance: DULOXETINE HYDROCHLORIDE
     Indication: MAJOR DEPRESSION
     Route: 048
  2. XYREM [Suspect]
     Active Substance: SODIUM OXYBATE
     Indication: SLEEP DISORDER
     Dosage: DOSE ADJUSTMENTS
     Route: 048
  3. XYREM [Suspect]
     Active Substance: SODIUM OXYBATE
     Dosage: 3 G,BID
     Route: 048
     Dates: start: 20140209, end: 20140422
  4. XYREM [Suspect]
     Active Substance: SODIUM OXYBATE
     Dosage: 3 G,BID
     Route: 048
     Dates: start: 20140424, end: 201501
  5. XYREM [Suspect]
     Active Substance: SODIUM OXYBATE
     Indication: NARCOLEPSY
     Dosage: 4 G, BID
     Route: 048
     Dates: start: 200609
  6. XYREM [Suspect]
     Active Substance: SODIUM OXYBATE
     Dosage: 3 G, QD
     Route: 048
     Dates: start: 201501
  7. XYREM [Suspect]
     Active Substance: SODIUM OXYBATE
     Indication: FIBROMYALGIA
     Dosage: 3 G,BID
     Route: 048
     Dates: start: 201203, end: 20140127
  8. FEMARA [Suspect]
     Active Substance: LETROZOLE
     Indication: BREAST CANCER
     Dosage: UNK
  9. FOSAMAX [Suspect]
     Active Substance: ALENDRONATE SODIUM
     Indication: PRODUCT USED FOR UNKNOWN INDICATION

REACTIONS (9)
  - Procedural pain [Recovering/Resolving]
  - Somnambulism [Recovering/Resolving]
  - Middle insomnia [Recovering/Resolving]
  - Condition aggravated [Recovering/Resolving]
  - Serum ferritin decreased [Not Recovered/Not Resolved]
  - Breast cancer [Recovering/Resolving]
  - Hyperhidrosis [Recovered/Resolved]
  - Feeling abnormal [Recovered/Resolved]
  - Breast operation [Recovering/Resolving]

NARRATIVE: CASE EVENT DATE: 20140127
